FAERS Safety Report 7626756-2 (Version None)
Quarter: 2011Q3

REPORT INFORMATION
  Report Type: 
  Country: None (occurrence: None)
  Receive Date: 20110721
  Receipt Date: 20110708
  Transmission Date: 20111222
  Serious: Yes (Other)
  Sender: FDA-Public Use
  Company Number: DE-ELI_LILLY_AND_COMPANY-DE201105007136

PATIENT
  Sex: Male
  Weight: 47.7 kg

DRUGS (2)
  1. STRATTERA [Suspect]
     Indication: ATTENTION DEFICIT/HYPERACTIVITY DISORDER
     Dosage: 25 MG, EACH MORNING
     Route: 048
     Dates: start: 20100707, end: 20110407
  2. STRATTERA [Suspect]
     Dosage: 40 MG, QD
     Dates: end: 20110426

REACTIONS (2)
  - SUICIDE ATTEMPT [None]
  - SELF INJURIOUS BEHAVIOUR [None]
